FAERS Safety Report 5201188-5 (Version None)
Quarter: 2007Q1

REPORT INFORMATION
  Report Type: 
  Country: None (occurrence: None)
  Receive Date: 20070103
  Receipt Date: 20061218
  Transmission Date: 20070707
  Serious: Yes (Life-Threatening)
  Sender: FDA-Public Use
  Company Number: 15394

PATIENT
  Age: 46 Year
  Sex: Female

DRUGS (18)
  1. EPHEDRINE SUL CAP [Suspect]
     Indication: HYPOTENSION
     Dosage: 6 MG
  2. FENTANYL TRANSDERMAL SYSTEM [Suspect]
  3. ISOFLURANE [Suspect]
  4. MORPHINE [Suspect]
  5. ONDANSETRON [Suspect]
     Dosage: 4 MG
  6. PROPOFOL [Suspect]
  7. AMOXICILLIN [Suspect]
     Dosage: 1 G
  8. DICLOFENAC SODIUM [Suspect]
     Dosage: 75 MG IV
     Route: 042
  9. GLYCOPYRROLATE [Suspect]
  10. NEOSTIGMINE [Suspect]
  11. NITROUS OXIDE W/ OXYGEN [Suspect]
  12. OXYGEN [Suspect]
  13. VECURONIUM BROMIDE [Suspect]
  14. DIAZEPAM [Concomitant]
  15. CO-DYDRAMOL [Concomitant]
  16. ESCITALOPRAM OXALATE [Concomitant]
  17. NORETHINDRONE ACETATE [Concomitant]
  18. ZOLPIDEM TARTRATE [Concomitant]

REACTIONS (11)
  - ACUTE HEPATIC FAILURE [None]
  - HEPATOMEGALY [None]
  - HYPOTENSION [None]
  - PCO2 DECREASED [None]
  - PHYSICAL EXAMINATION ABNORMAL [None]
  - POST PROCEDURAL COMPLICATION [None]
  - RESPIRATORY DISORDER [None]
  - SOMNOLENCE [None]
  - STRIDOR [None]
  - TACHYCARDIA [None]
  - TACHYPNOEA [None]
